FAERS Safety Report 5599707-2 (Version None)
Quarter: 2008Q1

REPORT INFORMATION
  Report Type: 
  Country: None (occurrence: None)
  Receive Date: 20080118
  Receipt Date: 20080118
  Transmission Date: 20080703
  Serious: Yes (Life-Threatening, Hospitalization)
  Sender: FDA-Public Use
  Company Number: None

PATIENT
  Age: 57 Year
  Sex: Male
  Weight: 85 kg

DRUGS (9)
  1. WARFARIN SODIUM [Suspect]
     Indication: ATRIAL FIBRILLATION
     Dosage: 1 MG PO QD
     Route: 048
  2. NEPHROCAPS [Concomitant]
  3. METOPROLOL TARTRATE [Concomitant]
  4. ALLOPURINOL [Concomitant]
  5. AMIODARONE [Concomitant]
  6. HYDROCHLOROTHIAZIDE [Concomitant]
  7. COLCHICINE [Concomitant]
  8. ASPIRIN [Concomitant]
  9. SENSIPAR [Concomitant]

REACTIONS (5)
  - INTERNATIONAL NORMALISED RATIO INCREASED [None]
  - MALAISE [None]
  - ORTHOSTATIC HYPOTENSION [None]
  - OXYGEN SATURATION DECREASED [None]
  - PERICARDIAL HAEMORRHAGE [None]
